FAERS Safety Report 7461445-9 (Version None)
Quarter: 2011Q2

REPORT INFORMATION
  Report Type: 
  Country: None (occurrence: None)
  Receive Date: 20110506
  Receipt Date: 20110429
  Transmission Date: 20111010
  Serious: No
  Sender: FDA-Public Use
  Company Number: US-PFIZER INC-2011093800

PATIENT
  Sex: Female

DRUGS (1)
  1. TIKOSYN [Suspect]
     Dosage: 250 UG, 2X/DAY

REACTIONS (5)
  - DIZZINESS [None]
  - DYSARTHRIA [None]
  - HEADACHE [None]
  - SLEEP DISORDER [None]
  - EAR DISCOMFORT [None]
